FAERS Safety Report 22004624 (Version 4)
Quarter: 2023Q1

REPORT INFORMATION
  Report Type: Spontaneous
  Country: US (occurrence: US)
  Receive Date: 20230217
  Receipt Date: 20230325
  Transmission Date: 20230417
  Serious: No
  Sender: FDA-Public Use
  Company Number: US-UNITED THERAPEUTICS-UNT-2023-004213

PATIENT
  Age: 45 Year
  Sex: Female
  Weight: 64.399 kg

DRUGS (2)
  1. REMODULIN [Suspect]
     Active Substance: TREPROSTINIL
     Indication: Pulmonary arterial hypertension
     Dosage: 0.008 ?G/KG, CONTINUING (SELF-FILLED CASSETTE WITH 2.7 ML; PUMP RATE OF 30 MCL PER HOUR)
     Route: 058
     Dates: start: 20230207
  2. REMODULIN [Suspect]
     Active Substance: TREPROSTINIL
     Dosage: 0.011 ?G/KG (SELF-FILL CASSETTE WITH 3 ML, RATE OF 42 MCL PER HOUR), CONTINUING
     Route: 058

REACTIONS (12)
  - Headache [Recovered/Resolved]
  - Pain in jaw [Recovered/Resolved]
  - Diarrhoea [Recovered/Resolved]
  - Peripheral swelling [Unknown]
  - Device infusion issue [Unknown]
  - Device difficult to use [Unknown]
  - Device maintenance issue [Unknown]
  - Infusion site hypersensitivity [Unknown]
  - Infusion site discharge [Unknown]
  - Purulent discharge [Unknown]
  - Blood blister [Unknown]
  - Infusion site vesicles [Unknown]

NARRATIVE: CASE EVENT DATE: 20230201
